FAERS Safety Report 9375661 (Version 2)
Quarter: 2013Q4

REPORT INFORMATION
  Report Type: Spontaneous
  Country: ES (occurrence: ES)
  Receive Date: 20130628
  Receipt Date: 20131211
  Transmission Date: 20140711
  Serious: Yes (Death, Hospitalization, Other)
  Sender: FDA-Public Use
  Company Number: ES-TEVA-415127USA

PATIENT
  Age: 71 Year
  Sex: Female

DRUGS (11)
  1. BENDAMUSTINE [Suspect]
     Indication: B-CELL LYMPHOMA
     Dosage: MONO THERAPY AT 90-100 MG/M2
     Route: 042
     Dates: start: 20130601
  2. ALLOPURINOL [Concomitant]
     Indication: PROPHYLAXIS
  3. SERUM BICARBONATE [Concomitant]
     Indication: PROPHYLAXIS
  4. RASBURICASE [Concomitant]
     Indication: PROPHYLAXIS
  5. CORTICOSTEROID NOS [Concomitant]
     Indication: SPLENOMEGALY
  6. OMEPRAZOLE [Concomitant]
     Indication: PROPHYLAXIS
  7. FLUCONAZOLE [Concomitant]
     Indication: PROPHYLAXIS
  8. ACYCLOVIR [Concomitant]
     Indication: PROPHYLAXIS
  9. LEVOFLOXACIN [Concomitant]
     Indication: PROPHYLAXIS
  10. SEPTRIM [Concomitant]
     Indication: PROPHYLAXIS
  11. ADEQUATE HYDRATION [Concomitant]
     Indication: PROPHYLAXIS

REACTIONS (8)
  - Respiratory failure [Fatal]
  - Infection [Fatal]
  - Lung infiltration [Unknown]
  - Lymphopenia [Unknown]
  - Pyrexia [Unknown]
  - Malaise [Unknown]
  - Pyrexia [Unknown]
  - Hypotension [Unknown]
